FAERS Safety Report 15537533 (Version 1)
Quarter: 2018Q4

REPORT INFORMATION
  Report Type: Report from Study
  Country: US (occurrence: US)
  Receive Date: 20181022
  Receipt Date: 20181022
  Transmission Date: 20190205
  Serious: Yes (Other)
  Sender: FDA-Public Use
  Company Number: US-ROCHE-2201766

PATIENT
  Age: 64 Year
  Sex: Male
  Weight: 99.79 kg

DRUGS (43)
  1. RITUXAN [Suspect]
     Active Substance: RITUXIMAB
     Indication: CHRONIC LYMPHOCYTIC LEUKAEMIA
     Route: 065
     Dates: start: 20110103, end: 20110329
  2. RITUXAN [Suspect]
     Active Substance: RITUXIMAB
     Route: 065
     Dates: start: 20140321, end: 20140321
  3. IBRUTINIB [Concomitant]
     Active Substance: IBRUTINIB
     Route: 048
     Dates: start: 20140616
  4. IBRUTINIB [Concomitant]
     Active Substance: IBRUTINIB
     Dosage: DOSE REDUCED FROM 280MG TO 140MGDAILY
     Route: 048
     Dates: start: 20180608
  5. IVIG [Concomitant]
     Active Substance: HUMAN IMMUNOGLOBULIN G
     Route: 065
     Dates: start: 20130423, end: 20170823
  6. ATORVASTATIN [Concomitant]
     Active Substance: ATORVASTATIN
     Route: 065
  7. IVIG [Concomitant]
     Active Substance: HUMAN IMMUNOGLOBULIN G
     Route: 065
     Dates: start: 20150730, end: 20170823
  8. PENTOSTATIN. [Concomitant]
     Active Substance: PENTOSTATIN
  9. VENETOCLAX. [Suspect]
     Active Substance: VENETOCLAX
     Route: 048
  10. ELITEK [Suspect]
     Active Substance: RASBURICASE
     Indication: PRODUCT USED FOR UNKNOWN INDICATION
     Route: 065
     Dates: start: 20170126, end: 20170516
  11. CIPROFLOXACIN. [Concomitant]
     Active Substance: CIPROFLOXACIN
     Route: 065
  12. LOMOTIL [Concomitant]
     Active Substance: ATROPINE SULFATE\DIPHENOXYLATE HYDROCHLORIDE
     Dosage: 2.5-0.025MG
     Route: 065
  13. NYSTATIN. [Concomitant]
     Active Substance: NYSTATIN
     Dosage: 10,000 UNIT/GRAM
     Route: 061
  14. NEUPOGEN [Concomitant]
     Active Substance: FILGRASTIM
     Route: 065
     Dates: start: 20170523, end: 20170523
  15. LOSARTAN. [Concomitant]
     Active Substance: LOSARTAN
  16. IBRUTINIB [Concomitant]
     Active Substance: IBRUTINIB
     Route: 048
     Dates: start: 201705, end: 20171120
  17. PREDNISONE. [Concomitant]
     Active Substance: PREDNISONE
     Route: 048
     Dates: start: 20170515
  18. TRAMADOL. [Concomitant]
     Active Substance: TRAMADOL
     Route: 065
  19. CYCLOPHOSPHAMIDE. [Concomitant]
     Active Substance: CYCLOPHOSPHAMIDE
     Route: 048
     Dates: start: 20121001, end: 20130805
  20. ULORIC [Concomitant]
     Active Substance: FEBUXOSTAT
  21. GAZYVA [Suspect]
     Active Substance: OBINUTUZUMAB
     Indication: CHRONIC LYMPHOCYTIC LEUKAEMIA
     Route: 042
     Dates: start: 20170124, end: 20170516
  22. DEXAMETHASONE. [Concomitant]
     Active Substance: DEXAMETHASONE
     Route: 042
     Dates: start: 20170123
  23. METHYLPREDNISOLONE. [Concomitant]
     Active Substance: METHYLPREDNISOLONE
     Route: 065
     Dates: start: 20170516
  24. ALLOPURINOL. [Concomitant]
     Active Substance: ALLOPURINOL
     Route: 065
  25. ALPRAZOLAM. [Concomitant]
     Active Substance: ALPRAZOLAM
     Route: 065
  26. CYCLOPHOSPHAMIDE. [Concomitant]
     Active Substance: CYCLOPHOSPHAMIDE
     Dosage: 50MG EVERY OTHER DAY+INCREASED TO100MG 23-DEC-2010
     Route: 048
     Dates: start: 20080402, end: 20081223
  27. VENETOCLAX. [Suspect]
     Active Substance: VENETOCLAX
     Indication: CHRONIC LYMPHOCYTIC LEUKAEMIA
     Route: 048
  28. VENETOCLAX. [Suspect]
     Active Substance: VENETOCLAX
     Route: 048
     Dates: start: 20180427
  29. PREDNISONE. [Concomitant]
     Active Substance: PREDNISONE
     Route: 048
  30. ANDROGEL [Concomitant]
     Active Substance: TESTOSTERONE
     Dosage: 20.25MG/1.25GM
     Route: 062
  31. IVIG [Concomitant]
     Active Substance: HUMAN IMMUNOGLOBULIN G
     Route: 065
     Dates: start: 20141229, end: 20141230
  32. METFORMIN [Concomitant]
     Active Substance: METFORMIN HYDROCHLORIDE
     Route: 065
  33. GAZYVA [Suspect]
     Active Substance: OBINUTUZUMAB
     Route: 042
     Dates: start: 20170125
  34. VENETOCLAX. [Suspect]
     Active Substance: VENETOCLAX
     Route: 048
  35. LEUKERAN [Suspect]
     Active Substance: CHLORAMBUCIL
     Indication: PRODUCT USED FOR UNKNOWN INDICATION
     Dosage: DAY 1 AND DAY 15
     Route: 048
     Dates: start: 20170126, end: 20170516
  36. FLUDARA [Suspect]
     Active Substance: FLUDARABINE PHOSPHATE
     Indication: PRODUCT USED FOR UNKNOWN INDICATION
     Route: 065
     Dates: start: 20170517, end: 20170613
  37. IBRUTINIB [Concomitant]
     Active Substance: IBRUTINIB
     Route: 048
     Dates: start: 20140411
  38. TREANDA [Concomitant]
     Active Substance: BENDAMUSTINE HYDROCHLORIDE
     Route: 065
     Dates: start: 20110103, end: 20110329
  39. IVIG [Concomitant]
     Active Substance: HUMAN IMMUNOGLOBULIN G
     Route: 065
     Dates: start: 20170724, end: 20180327
  40. RITUXAN [Suspect]
     Active Substance: RITUXIMAB
     Route: 065
     Dates: start: 20170517, end: 20170613
  41. AMARYL [Concomitant]
     Active Substance: GLIMEPIRIDE
     Route: 065
  42. FINASTERIDE. [Concomitant]
     Active Substance: FINASTERIDE
     Route: 065
  43. OMEPRAZOLE. [Concomitant]
     Active Substance: OMEPRAZOLE
     Dosage: DELYAED RELEASE
     Route: 065

REACTIONS (17)
  - Cytopenia [Unknown]
  - Drug intolerance [Unknown]
  - Drug hypersensitivity [Unknown]
  - Azotaemia [Unknown]
  - Hyperhidrosis [Unknown]
  - Arthralgia [Unknown]
  - Skin papilloma [Unknown]
  - Diarrhoea [Unknown]
  - Chills [Unknown]
  - Back pain [Recovered/Resolved]
  - Impaired healing [Unknown]
  - Splenomegaly [Unknown]
  - Drug ineffective [Unknown]
  - Thrombocytopenia [Unknown]
  - Abdominal pain upper [Unknown]
  - White blood cell count decreased [Unknown]
  - Agranulocytosis [Unknown]

NARRATIVE: CASE EVENT DATE: 20150723
